FAERS Safety Report 4882973-6 (Version None)
Quarter: 2006Q1

REPORT INFORMATION
  Report Type: 
  Country: None (occurrence: None)
  Receive Date: 20060118
  Receipt Date: 20060103
  Transmission Date: 20060701
  Serious: Yes (Other)
  Sender: FDA-Public Use
  Company Number: NL-AMGEN-UK163488

PATIENT
  Age: 16 Year
  Sex: Female

DRUGS (2)
  1. KINERET [Suspect]
     Indication: PRE-EXISTING DISEASE
     Route: 065
     Dates: start: 20040101, end: 20051101
  2. KINERET [Suspect]
     Route: 065
     Dates: start: 20051101

REACTIONS (1)
  - OBESITY [None]
